FAERS Safety Report 8096779-0 (Version None)
Quarter: 2012Q1

REPORT INFORMATION
  Report Type: 
  Country: None (occurrence: None)
  Receive Date: 20120129
  Receipt Date: 20111110
  Transmission Date: 20120608
  Serious: No
  Sender: FDA-Public Use
  Company Number: US-ABBOTT-11P-163-0860261-00

PATIENT
  Sex: Female
  Weight: 73.548 kg

DRUGS (11)
  1. PENTASA [Concomitant]
     Indication: COLITIS ULCERATIVE
     Dosage: 1000 MG BID 2 TABS
  2. TEMAZEPAM [Concomitant]
     Indication: PRODUCT USED FOR UNKNOWN INDICATION
     Dosage: AT BEDTIME  AT BEDTIME
  3. PRO ENZYME [Concomitant]
     Indication: PRODUCT USED FOR UNKNOWN INDICATION
  4. BELLADONNA PD [Concomitant]
     Indication: IRRITABLE BOWEL SYNDROME
     Dosage: TWICE DAILY
  5. UNKNOWN STEROIDS [Concomitant]
     Indication: CROHN'S DISEASE
     Dates: start: 20110801
  6. HUMIRA [Suspect]
     Indication: RHEUMATOID ARTHRITIS
     Route: 058
     Dates: start: 20110902
  7. TRAMADOL HCL [Concomitant]
     Indication: PAIN
  8. UNKNOWN SUPPLEMENTS [Concomitant]
     Indication: PRODUCT USED FOR UNKNOWN INDICATION
  9. PREDNISONE TAB [Concomitant]
     Indication: INFLAMMATION
  10. HUMIRA [Suspect]
     Indication: CROHN'S DISEASE
  11. MULTI-VITAMINS [Concomitant]
     Indication: PRODUCT USED FOR UNKNOWN INDICATION

REACTIONS (7)
  - PRURITUS [None]
  - OVARIAN CYST [None]
  - DRY SKIN [None]
  - ARTHRALGIA [None]
  - MUSCULAR WEAKNESS [None]
  - RHEUMATOID ARTHRITIS [None]
  - ENDOMETRIOSIS [None]
